FAERS Safety Report 9783813 (Version 1)
Quarter: 2013Q4

REPORT INFORMATION
  Report Type: Spontaneous
  Country: US (occurrence: US)
  Receive Date: 20131226
  Receipt Date: 20131226
  Transmission Date: 20140711
  Serious: No
  Sender: FDA-Public Use
  Company Number: US-BAYER-2013-155134

PATIENT
  Age: 39 Year
  Sex: Female

DRUGS (3)
  1. NAPROXEN SODIUM ({= 220 MG) [Suspect]
     Indication: HEADACHE
  2. DIPHENHYDRAMINE [Concomitant]
  3. FEXOFENADINE [Concomitant]

REACTIONS (3)
  - Palpitations [None]
  - Flushing [None]
  - Bone pain [None]
